FAERS Safety Report 5279318-9 (Version None)
Quarter: 2007Q1

REPORT INFORMATION
  Report Type: 
  Country: None (occurrence: None)
  Receive Date: 20070328
  Receipt Date: 20060421
  Transmission Date: 20070707
  Serious: No
  Sender: FDA-Public Use
  Company Number: US-AMGEN-US176928

PATIENT
  Sex: Female
  Weight: 63.1 kg

DRUGS (7)
  1. NEULASTA [Suspect]
     Indication: CHEMOTHERAPY
     Route: 058
     Dates: start: 20060418
  2. DECADRON [Suspect]
     Route: 065
     Dates: start: 20060417
  3. ADRIAMYCIN PFS [Concomitant]
     Route: 042
     Dates: start: 20060417
  4. CYCLOPHOSPHAMIDE [Concomitant]
     Route: 042
     Dates: start: 20060417
  5. NEXIUM [Concomitant]
     Route: 048
     Dates: start: 20060417
  6. EMEND [Concomitant]
     Route: 048
     Dates: start: 20060417
  7. KYTRIL [Concomitant]
     Route: 042
     Dates: start: 20060417

REACTIONS (1)
  - FLUSHING [None]
